FAERS Safety Report 25161501 (Version 1)
Quarter: 2025Q2

REPORT INFORMATION
  Report Type: Spontaneous
  Country: US (occurrence: US)
  Receive Date: 20250404
  Receipt Date: 20250404
  Transmission Date: 20250717
  Serious: Yes (Other)
  Sender: AUROBINDO
  Company Number: US-AUROBINDO-AUR-APL-2025-002841

PATIENT
  Age: 37 Year
  Sex: Male
  Weight: 94.34 kg

DRUGS (1)
  1. CLOZAPINE [Suspect]
     Active Substance: CLOZAPINE
     Indication: Product used for unknown indication
     Route: 065

REACTIONS (4)
  - Neutropenia [Unknown]
  - Constipation [Unknown]
  - Drooling [Unknown]
  - Somnolence [Unknown]

NARRATIVE: CASE EVENT DATE: 20250107
